FAERS Safety Report 8734247 (Version 7)
Quarter: 2012Q4

REPORT INFORMATION
  Report Type: 
  Country: CO (occurrence: CO)
  Receive Date: 20120821
  Receipt Date: 20121015
  Transmission Date: 20130627
  Serious: Yes (Hospitalization, Disabling)
  Sender: FDA-Public Use
  Company Number: CO-ALLERGAN-1211229US

PATIENT
  Age: 50 Year
  Sex: Female
  Weight: 51 kg

DRUGS (3)
  1. BOTOX� [Suspect]
     Indication: SKIN WRINKLING
     Dosage: 15 UNITS, single
     Route: 030
     Dates: start: 20120728, end: 20120728
  2. BOTOX� [Suspect]
     Dosage: 15 UNITS, single
     Dates: start: 20120728, end: 20120728
  3. BOTOX� [Suspect]
     Dosage: 30 UNITS, single

REACTIONS (7)
  - Tachycardia [Recovering/Resolving]
  - Dyspnoea [Recovered/Resolved]
  - Asthenia [Recovered/Resolved]
  - Dyspnoea [Recovering/Resolving]
  - Dysphagia [Recovering/Resolving]
  - Wrong technique in drug usage process [Unknown]
  - Chest discomfort [Recovering/Resolving]
